FAERS Safety Report 5313579-2 (Version None)
Quarter: 2007Q2

REPORT INFORMATION
  Report Type: 
  Country: None (occurrence: None)
  Receive Date: 20070425
  Receipt Date: 20070413
  Transmission Date: 20071010
  Serious: Yes (Other)
  Sender: FDA-Public Use
  Company Number: 2007SP007423

PATIENT
  Age: 58 Year
  Sex: Male

DRUGS (9)
  1. TEMODAL [Suspect]
     Indication: GLIOBLASTOMA MULTIFORME
     Dosage: 100 MG; QD; PO
     Route: 048
     Dates: start: 20070314
  2. RINDERON [Concomitant]
  3. CONIEL [Concomitant]
  4. MAINTATE [Concomitant]
  5. DEPAKENE [Concomitant]
  6. GASTER D [Concomitant]
  7. NASEA [Concomitant]
  8. DIFLUCAN [Concomitant]
  9. BAKTAR [Concomitant]

REACTIONS (3)
  - ALANINE AMINOTRANSFERASE INCREASED [None]
  - ASPARTATE AMINOTRANSFERASE INCREASED [None]
  - LIVER FUNCTION TEST ABNORMAL [None]
